FAERS Safety Report 7239402-7 (Version None)
Quarter: 2011Q1

REPORT INFORMATION
  Report Type: 
  Country: None (occurrence: None)
  Receive Date: 20110121
  Receipt Date: 20110114
  Transmission Date: 20110831
  Serious: Yes (Hospitalization)
  Sender: FDA-Public Use
  Company Number: US-GENENTECH-312463

PATIENT
  Age: 40 Year
  Sex: Female

DRUGS (4)
  1. AZITHROMYCIN [Concomitant]
     Indication: PRODUCT USED FOR UNKNOWN INDICATION
  2. XOLAIR [Suspect]
     Indication: PRODUCT USED FOR UNKNOWN INDICATION
  3. ETHAMBUTOL HYDROCHLORIDE [Concomitant]
     Indication: PRODUCT USED FOR UNKNOWN INDICATION
  4. RIFAMPIN [Concomitant]
     Indication: PRODUCT USED FOR UNKNOWN INDICATION

REACTIONS (2)
  - RENAL FAILURE ACUTE [None]
  - PANCREATITIS [None]
